FAERS Safety Report 16714619 (Version 1)
Quarter: 2019Q3

REPORT INFORMATION
  Report Type: Spontaneous
  Country: DE (occurrence: DE)
  Receive Date: 20190819
  Receipt Date: 20190819
  Transmission Date: 20191004
  Serious: No
  Sender: FDA-Public Use
  Company Number: DE-ACTELION-A-CH2019-194319

PATIENT
  Age: 31 Year
  Sex: Female

DRUGS (1)
  1. TRACLEER [Suspect]
     Active Substance: BOSENTAN
     Indication: SCLERODERMA
     Dosage: UNK
     Route: 048
     Dates: end: 201908

REACTIONS (1)
  - Exposure during pregnancy [Unknown]
